FAERS Safety Report 8743626 (Version 2)
Quarter: 2012Q4

REPORT INFORMATION
  Report Type: 
  Country: US (occurrence: US)
  Receive Date: 20120824
  Receipt Date: 20121003
  Transmission Date: 20130627
  Serious: Yes (Hospitalization, Other)
  Sender: FDA-Public Use
  Company Number: US-ELI_LILLY_AND_COMPANY-US201208004921

PATIENT
  Age: 83 Year
  Sex: Female
  Weight: 52.61 kg

DRUGS (6)
  1. FORTEO [Suspect]
     Indication: OSTEOPOROSIS
     Dosage: 20 ug, qd
     Route: 058
     Dates: start: 20100909, end: 20120806
  2. AMLODIPINE [Concomitant]
     Dosage: 5 mg, qd
  3. HYDROCHLOROTHIAZIDE [Concomitant]
     Dosage: 25 mg, qd
  4. CALCIUM + VITAMIN D [Concomitant]
     Dosage: UNK
  5. LISINOPRIL [Concomitant]
     Dosage: 25 mg, qd
  6. CENTRUM SILVER [Concomitant]
     Dosage: UNK

REACTIONS (2)
  - Hip fracture [Recovered/Resolved]
  - Fall [Recovered/Resolved]
